FAERS Safety Report 13793799 (Version 3)
Quarter: 2017Q3

REPORT INFORMATION
  Report Type: Spontaneous
  Country: DE (occurrence: DE)
  Receive Date: 20170726
  Receipt Date: 20170816
  Transmission Date: 20171127
  Serious: Yes (Hospitalization, Other)
  Sender: FDA-Public Use
  Company Number: DE-009507513-1707DEU010168

PATIENT
  Age: 17 Year
  Sex: Female
  Weight: 30 kg

DRUGS (18)
  1. TOBRAMYCIN. [Concomitant]
     Active Substance: TOBRAMYCIN
     Dosage: 300 MG/DAY
     Route: 042
  2. VITAMIN A [Concomitant]
     Active Substance: VITAMIN A
     Dosage: 10000 IU/DAY
     Route: 048
  3. URSOFALK [Concomitant]
     Active Substance: URSODIOL
     Dosage: 750 MG/DAY
     Route: 048
  4. FERRO SANOL [Concomitant]
     Active Substance: FERROUS GLYCINE SULFATE
     Dosage: 40 MG/DAY
     Route: 048
  5. KREON [Concomitant]
     Active Substance: PANCRELIPASE
     Dosage: UNK
  6. VITAMIN E [Concomitant]
     Active Substance: .ALPHA.-TOCOPHEROL
     Dosage: 400 IU/DAY
     Route: 048
  7. PULMOZYME [Concomitant]
     Active Substance: DORNASE ALFA
     Dosage: 2500 IU/DAY
     Route: 055
  8. VIGANTOLETTEN [Concomitant]
     Active Substance: CHOLECALCIFEROL
     Dosage: 1000 IU/DAY
     Route: 048
  9. PHYTONADIONE. [Concomitant]
     Active Substance: PHYTONADIONE
     Dosage: 10 MG/WEEK
     Route: 048
  10. TOBRAMYCIN. [Concomitant]
     Active Substance: TOBRAMYCIN
     Dosage: 160 MG/DAY
     Route: 055
  11. SODIUM CHLORIDE. [Concomitant]
     Active Substance: SODIUM CHLORIDE
     Dosage: UNK
     Route: 055
  12. ALBUTEROL. [Concomitant]
     Active Substance: ALBUTEROL
     Dosage: UNK
     Route: 055
  13. PANTOPRAZOLE [Concomitant]
     Active Substance: PANTOPRAZOLE
     Dosage: 40 MG/DAY
     Route: 048
  14. ACC (ACETYLCYSTEINE) [Concomitant]
     Dosage: 400 MG/DAY
     Route: 048
  15. NOXAFIL [Suspect]
     Active Substance: POSACONAZOLE
     Indication: PROPHYLAXIS
     Dosage: 300 MG/DAY
     Route: 048
  16. MEROPENEM. [Concomitant]
     Active Substance: MEROPENEM
     Dosage: 3 G/DAY
     Route: 042
  17. ORKAMBI [Concomitant]
     Active Substance: IVACAFTOR\LUMACAFTOR
     Dosage: 400 MG/DAY
     Route: 048
  18. ENALAPRIL MALEATE. [Concomitant]
     Active Substance: ENALAPRIL MALEATE
     Dosage: 2.5 MG/DAY
     Route: 048

REACTIONS (5)
  - Alopecia [Not Recovered/Not Resolved]
  - Skin disorder [Not Recovered/Not Resolved]
  - Dermatitis exfoliative [Unknown]
  - Adverse event [Unknown]
  - Off label use [Unknown]
